FAERS Safety Report 6589650-4 (Version None)
Quarter: 2010Q1

REPORT INFORMATION
  Report Type: 
  Country: None (occurrence: None)
  Receive Date: 20100212
  Receipt Date: 20100127
  Transmission Date: 20100710
  Serious: Yes (Disabling)
  Sender: FDA-Public Use
  Company Number: OSCN-PR-1001L-0027

PATIENT
  Age: 25 Year
  Sex: Female

DRUGS (1)
  1. OMNISCAN [Suspect]
     Indication: DRUG USE FOR UNKNOWN INDICATION
     Dosage: SINGLE DOSE

REACTIONS (12)
  - ACUTE PROMYELOCYTIC LEUKAEMIA [None]
  - ENDOTRACHEAL INTUBATION COMPLICATION [None]
  - FIBROSIS [None]
  - HYPOTENSION [None]
  - MYOCARDIAL FIBROSIS [None]
  - NEPHROGENIC SYSTEMIC FIBROSIS [None]
  - NERVOUS SYSTEM DISORDER [None]
  - RESPIRATORY FAILURE [None]
  - SEPSIS [None]
  - SEPTIC SHOCK [None]
  - TACHYCARDIA [None]
  - TREATMENT FAILURE [None]
